FAERS Safety Report 8242400-8 (Version None)
Quarter: 2012Q1

REPORT INFORMATION
  Report Type: 
  Country: None (occurrence: None)
  Receive Date: 20120329
  Receipt Date: 20120316
  Transmission Date: 20120608
  Serious: No
  Sender: FDA-Public Use
  Company Number: US-JNJFOC-20120309140

PATIENT
  Sex: Male
  Weight: 83.92 kg

DRUGS (1)
  1. DURAGESIC-100 [Suspect]
     Indication: PAIN
     Route: 062
     Dates: start: 20120315

REACTIONS (1)
  - WRONG TECHNIQUE IN DRUG USAGE PROCESS [None]
